FAERS Safety Report 11222827 (Version 1)
Quarter: 2015Q2

REPORT INFORMATION
  Report Type: Spontaneous
  Country: US (occurrence: US)
  Receive Date: 20150626
  Receipt Date: 20150626
  Transmission Date: 20150821
  Serious: Yes (Death, Other)
  Sender: FDA-Public Use
  Company Number: US-ACTELION-A-NJ2015-119699

PATIENT
  Age: 59 Year
  Sex: Male

DRUGS (5)
  1. TORSEMIDE. [Concomitant]
     Active Substance: TORSEMIDE
  2. VELETRI [Suspect]
     Active Substance: EPOPROSTENOL
     Indication: PULMONARY VENO-OCCLUSIVE DISEASE
     Dosage: 30 NG/KG, PER MIN
     Route: 042
     Dates: start: 2013, end: 20150618
  3. COUMADIN [Concomitant]
     Active Substance: WARFARIN SODIUM
  4. DIGOXIN. [Concomitant]
     Active Substance: DIGOXIN
  5. ADCIRCA [Concomitant]
     Active Substance: TADALAFIL

REACTIONS (3)
  - Mental status changes [Unknown]
  - Right ventricular failure [Fatal]
  - Confusional state [Unknown]

NARRATIVE: CASE EVENT DATE: 20150618
